FAERS Safety Report 7134576-0 (Version None)
Quarter: 2010Q4

REPORT INFORMATION
  Report Type: 
  Country: None (occurrence: None)
  Receive Date: 20101203
  Receipt Date: 20101123
  Transmission Date: 20110411
  Serious: Yes (Other)
  Sender: FDA-Public Use
  Company Number: US-SANOFI-AVENTIS-A03200903688

PATIENT
  Age: 66 Year
  Sex: Male
  Weight: 73.48 kg

DRUGS (16)
  1. AMBIEN CR [Suspect]
     Indication: INSOMNIA
     Route: 048
     Dates: end: 20090101
  2. AMBIEN CR [Suspect]
     Route: 048
     Dates: start: 20090101
  3. AMBIEN [Suspect]
     Indication: INSOMNIA
     Dosage: DOSE TEXT: TAKES DOSES OF 5MG OR LESS AT NIGHT
     Route: 048
     Dates: start: 20020101
  4. AMBIEN [Suspect]
     Dosage: DOSE TEXT: TAKES DOSES OF 7 TO 8 MG AT NIGHT
     Route: 048
     Dates: start: 20090101
  5. MIRTAZAPINE [Concomitant]
  6. ZOLOFT [Concomitant]
     Route: 048
  7. ZOLOFT [Concomitant]
     Route: 048
     Dates: start: 20080915
  8. LIPITOR [Concomitant]
     Dosage: 20 MG ALTERNATING WITH 40 MG
     Route: 048
  9. LIPITOR [Concomitant]
     Route: 048
  10. FOLGARD [Concomitant]
  11. ASPIRIN [Concomitant]
     Dosage: AS DIRECTED (4-5 TIMES A DAY)
     Route: 048
  12. WELLBUTRIN [Concomitant]
  13. ZETIA [Concomitant]
     Route: 048
  14. XANAX [Concomitant]
  15. ZYPREXA [Concomitant]
  16. DICLOFENAC POTASSIUM [Concomitant]
     Route: 048

REACTIONS (17)
  - CONCUSSION [None]
  - CONTUSION [None]
  - DRUG INEFFECTIVE [None]
  - FATIGUE [None]
  - HAEMATOMA [None]
  - IMPAIRED DRIVING ABILITY [None]
  - INCORRECT DOSE ADMINISTERED [None]
  - MUSCULOSKELETAL PAIN [None]
  - NECK PAIN [None]
  - PAIN [None]
  - POST-TRAUMATIC AMNESTIC DISORDER [None]
  - ROAD TRAFFIC ACCIDENT [None]
  - SKIN HAEMORRHAGE [None]
  - SKIN LACERATION [None]
  - SOMNOLENCE [None]
  - SYNCOPE [None]
  - WRONG TECHNIQUE IN DRUG USAGE PROCESS [None]
